FAERS Safety Report 6899447-3 (Version None)
Quarter: 2010Q3

REPORT INFORMATION
  Report Type: 
  Country: None (occurrence: None)
  Receive Date: 20100803
  Receipt Date: 20091012
  Transmission Date: 20110219
  Serious: No
  Sender: FDA-Public Use
  Company Number: US-PFIZER INC-2007004773

PATIENT
  Sex: Female
  Weight: 65.8 kg

DRUGS (6)
  1. LYRICA [Suspect]
     Indication: MYALGIA
     Dosage: 75 MG, 4X/DAY
     Route: 048
     Dates: start: 20060401
  2. LYRICA [Suspect]
     Indication: FIBROMYALGIA
  3. LYRICA [Suspect]
     Indication: NEUROPATHY PERIPHERAL
  4. AMITRIPTYLINE HYDROCHLORIDE [Concomitant]
     Dosage: UNK
  5. LEVOXYL [Concomitant]
     Indication: HYPOTHYROIDISM
  6. MAXALT-MLT [Concomitant]
     Indication: MIGRAINE
     Dosage: UNK

REACTIONS (15)
  - BRUXISM [None]
  - CONSTIPATION [None]
  - DIARRHOEA [None]
  - DYSKINESIA [None]
  - HAEMORRHAGE [None]
  - INCREASED APPETITE [None]
  - JOINT STIFFNESS [None]
  - LYMPHOCYTE COUNT INCREASED [None]
  - MUSCLE TIGHTNESS [None]
  - NEUTROPHIL COUNT DECREASED [None]
  - ORAL PAIN [None]
  - PAIN IN JAW [None]
  - TOOTH FRACTURE [None]
  - TRI-IODOTHYRONINE DECREASED [None]
  - WEIGHT INCREASED [None]
